FAERS Safety Report 9380830 (Version 3)
Quarter: 2013Q4

REPORT INFORMATION
  Report Type: Spontaneous
  Country: US (occurrence: US)
  Receive Date: 20130702
  Receipt Date: 20131028
  Transmission Date: 20140711
  Serious: Yes (Hospitalization, Other)
  Sender: FDA-Public Use
  Company Number: US-CELGENEUS-163-21880-13063380

PATIENT
  Age: 65 Year
  Sex: Male
  Weight: 134 kg

DRUGS (12)
  1. REVLIMID [Suspect]
     Indication: PLASMA CELL MYELOMA
     Dosage: 25 MILLIGRAM
     Route: 048
     Dates: start: 201108
  2. REVLIMID [Suspect]
     Dosage: 25 MILLIGRAM
     Route: 048
     Dates: start: 20130717
  3. DEXAMETHASONE [Concomitant]
     Indication: PRODUCT USED FOR UNKNOWN INDICATION
     Route: 065
     Dates: start: 201108
  4. ZOMETA [Concomitant]
     Indication: OSTEOLYSIS
     Route: 065
  5. LOVENOX [Concomitant]
     Indication: PRODUCT USED FOR UNKNOWN INDICATION
     Dosage: 40 MILLIGRAM
     Route: 065
  6. LASIX [Concomitant]
     Indication: FLUID OVERLOAD
     Route: 041
  7. PEPCID [Concomitant]
     Indication: PRODUCT USED FOR UNKNOWN INDICATION
     Route: 065
  8. ALBUTEROL NEBULIZER [Concomitant]
     Indication: PRODUCT USED FOR UNKNOWN INDICATION
     Route: 065
  9. UNISOM [Concomitant]
     Indication: PRODUCT USED FOR UNKNOWN INDICATION
     Route: 065
  10. MORPHINE [Concomitant]
     Indication: PAIN
     Route: 065
  11. UNASYN [Concomitant]
     Indication: FLUID OVERLOAD
     Route: 041
  12. LEVOPHED [Concomitant]
     Indication: HYPOTENSION
     Route: 065
     Dates: start: 20130529

REACTIONS (6)
  - Hyperglycaemic hyperosmolar nonketotic syndrome [Unknown]
  - Pneumonia [Unknown]
  - Anaemia [Unknown]
  - Septic shock [Unknown]
  - Dysphagia [Recovered/Resolved]
  - Hypophagia [Recovered/Resolved]
